FAERS Safety Report 14223301 (Version 2)
Quarter: 2017Q4

REPORT INFORMATION
  Report Type: Spontaneous
  Country: JP (occurrence: JP)
  Receive Date: 20171124
  Receipt Date: 20171207
  Transmission Date: 20180321
  Serious: Yes (Hospitalization)
  Sender: FDA-Public Use
  Company Number: JP-HORIZON-BUP-0091-2017

PATIENT
  Age: 3 Year
  Sex: Female

DRUGS (4)
  1. ARGI-U [Concomitant]
     Indication: UREA CYCLE DISORDER
     Route: 048
     Dates: start: 20171113
  2. CITRULLINE [Concomitant]
     Active Substance: CITRULLINE
     Indication: UREA CYCLE DISORDER
     Route: 048
     Dates: start: 20171113
  3. BENZOIC ACID [Concomitant]
     Active Substance: BENZOIC ACID
     Indication: UREA CYCLE DISORDER
     Route: 048
     Dates: start: 20171113
  4. BUPHENYL [Suspect]
     Active Substance: SODIUM PHENYLBUTYRATE
     Indication: UREA CYCLE DISORDER
     Dosage: 3000 MG DAILY
     Route: 048
     Dates: start: 20171113

REACTIONS (1)
  - Hyperammonaemia [Recovered/Resolved]

NARRATIVE: CASE EVENT DATE: 20171113
